FAERS Safety Report 6923715-X (Version None)
Quarter: 2010Q3

REPORT INFORMATION
  Report Type: 
  Country: None (occurrence: None)
  Receive Date: 20100813
  Receipt Date: 20100803
  Transmission Date: 20110219
  Serious: Yes (Other)
  Sender: FDA-Public Use
  Company Number: AU-ELI_LILLY_AND_COMPANY-AU201008000444

PATIENT
  Age: 47 Year
  Sex: Female

DRUGS (4)
  1. FLUOXETINE [Suspect]
     Indication: DEPRESSION
     Dosage: 20 MG, DAILY (1/D)
     Route: 048
     Dates: start: 19950101, end: 20100401
  2. FLUOXETINE [Suspect]
     Dosage: 30 MG, DAILY (1/D)
     Route: 048
     Dates: start: 20100401
  3. MICARDIS [Concomitant]
     Dosage: UNK, UNKNOWN
     Route: 065
     Dates: start: 20060101
  4. PRAVACHOL [Concomitant]
     Dosage: UNK, UNKNOWN
     Route: 065
     Dates: start: 20080101

REACTIONS (2)
  - LOSS OF CONSCIOUSNESS [None]
  - PARAESTHESIA [None]
